FAERS Safety Report 4698940-1 (Version None)
Quarter: 2005Q2

REPORT INFORMATION
  Report Type: 
  Country: None (occurrence: None)
  Receive Date: 20050624
  Receipt Date: 20050428
  Transmission Date: 20051028
  Serious: Yes (Death)
  Sender: FDA-Public Use
  Company Number: US-BRISTOL-MYERS SQUIBB COMPANY-12949723

PATIENT
  Age: 77 Year
  Sex: Male

DRUGS (11)
  1. MEGACE [Suspect]
     Indication: CACHEXIA
     Route: 048
     Dates: start: 20050201, end: 20050301
  2. NAPROXEN [Concomitant]
  3. FLEXERIL [Concomitant]
  4. LIPITOR [Concomitant]
  5. PRINIVIL [Concomitant]
  6. ALBUTEROL [Concomitant]
  7. ASPIRIN [Concomitant]
  8. CEFTAZIDIME [Concomitant]
  9. PROTONIX [Concomitant]
  10. METRONIDAZOLE [Concomitant]
  11. RADIATION THERAPY [Concomitant]

REACTIONS (2)
  - MALIGNANT NEOPLASM PROGRESSION [None]
  - SEPTIC SHOCK [None]
